FAERS Safety Report 18729030 (Version 1)
Quarter: 2021Q1

REPORT INFORMATION
  Report Type: Report from Study
  Country: IN (occurrence: IN)
  Receive Date: 20210112
  Receipt Date: 20210112
  Transmission Date: 20210419
  Serious: Yes (Death)
  Sender: FDA-Public Use
  Company Number: NVSC2020IN338795

PATIENT
  Age: 49 Year
  Sex: Female
  Weight: 67 kg

DRUGS (1)
  1. VYMADA [Suspect]
     Active Substance: SACUBITRIL\VALSARTAN
     Indication: CARDIAC FAILURE CHRONIC
     Dosage: 50 MG, BID (1/4TH PART OF 200MG)
     Route: 048
     Dates: start: 20200816

REACTIONS (4)
  - Underdose [Unknown]
  - Wrong technique in product usage process [Unknown]
  - Sudden death [Fatal]
  - Product prescribing error [Unknown]

NARRATIVE: CASE EVENT DATE: 20200816
